FAERS Safety Report 24565301 (Version 1)
Quarter: 2024Q4

REPORT INFORMATION
  Report Type: Report from Study
  Country: RU (occurrence: RU)
  Receive Date: 20241030
  Receipt Date: 20241030
  Transmission Date: 20250115
  Serious: Yes (Other)
  Sender: MYLAN
  Company Number: RU-MYLANLABS-2024M1098201

PATIENT
  Age: 9 Year

DRUGS (3)
  1. ATORVASTATIN [Suspect]
     Active Substance: ATORVASTATIN
     Indication: Arteriosclerosis
     Dosage: 20 MILLIGRAM
     Route: 048
  2. FENOFIBRATE [Suspect]
     Active Substance: FENOFIBRATE
     Indication: Arteriosclerosis
     Dosage: 145 MILLIGRAM
     Route: 048
  3. EZETIMIBE [Suspect]
     Active Substance: EZETIMIBE
     Indication: Arteriosclerosis
     Dosage: 10 MILLIGRAM
     Route: 048

REACTIONS (1)
  - Drug ineffective [Unknown]
